FAERS Safety Report 8363689-0 (Version None)
Quarter: 2012Q1

REPORT INFORMATION
  Report Type: 
  Country: None (occurrence: None)
  Receive Date: 20120323
  Receipt Date: 20110413
  Transmission Date: 20120608
  Serious: Yes (Hospitalization)
  Sender: FDA-Public Use
  Company Number: 163-21880-11041572

PATIENT
  Age: 68 Year
  Sex: Female

DRUGS (4)
  1. REVLIMID [Suspect]
     Indication: MULTIPLE MYELOMA
     Dosage: 15 MG, DAILY FOR 21 DAYS, PO; 25 MG, DAILY FOR 14 DAYS, PO; 10 MG, DAILY FOR 14 DAYS, PO; 10 MG , DA
     Route: 048
     Dates: start: 20100723, end: 20100818
  2. REVLIMID [Suspect]
     Indication: MULTIPLE MYELOMA
     Dosage: 15 MG, DAILY FOR 21 DAYS, PO; 25 MG, DAILY FOR 14 DAYS, PO; 10 MG, DAILY FOR 14 DAYS, PO; 10 MG , DA
     Route: 048
     Dates: start: 20100818, end: 20110415
  3. REVLIMID [Suspect]
     Indication: MULTIPLE MYELOMA
     Dosage: 15 MG, DAILY FOR 21 DAYS, PO; 25 MG, DAILY FOR 14 DAYS, PO; 10 MG, DAILY FOR 14 DAYS, PO; 10 MG , DA
     Route: 048
     Dates: start: 20100521, end: 20100723
  4. REVLIMID [Suspect]
     Indication: MULTIPLE MYELOMA
     Dosage: 15 MG, DAILY FOR 21 DAYS, PO; 25 MG, DAILY FOR 14 DAYS, PO; 10 MG, DAILY FOR 14 DAYS, PO; 10 MG , DA
     Route: 048
     Dates: start: 20110415

REACTIONS (1)
  - BACK PAIN [None]
